FAERS Safety Report 23178531 (Version 1)
Quarter: 2023Q4

REPORT INFORMATION
  Report Type: Report from Study
  Country: US (occurrence: US)
  Receive Date: 20231113
  Receipt Date: 20231113
  Transmission Date: 20240109
  Serious: Yes (Hospitalization)
  Sender: FDA-Public Use
  Company Number: US-BAYER-2023A123535

PATIENT
  Age: 59 Year
  Sex: Female
  Weight: 82.086 kg

DRUGS (7)
  1. ADEMPAS [Suspect]
     Active Substance: RIOCIGUAT
     Indication: Pulmonary arterial hypertension
     Dosage: UNK
     Dates: start: 20211007
  2. ADEMPAS [Suspect]
     Active Substance: RIOCIGUAT
     Indication: Pulmonary arterial hypertension
     Dosage: 2.5 MG, TID
     Route: 048
  3. ADEMPAS [Suspect]
     Active Substance: RIOCIGUAT
     Indication: Pulmonary arterial hypertension
     Dosage: 2.5 MG, TID
     Route: 048
  4. ORENITRAM [Suspect]
     Active Substance: TREPROSTINIL
     Dosage: 15 MG, TID
  5. ORENITRAM [Suspect]
     Active Substance: TREPROSTINIL
     Dosage: 11 MG, TID
  6. TREPROSTINIL [Concomitant]
     Active Substance: TREPROSTINIL
     Dosage: UNK
     Route: 058
     Dates: end: 2023
  7. AMBRISENTAN [Concomitant]
     Active Substance: AMBRISENTAN
     Dosage: UNK

REACTIONS (11)
  - Diarrhoea [Not Recovered/Not Resolved]
  - Fatigue [Not Recovered/Not Resolved]
  - Nasopharyngitis [Recovered/Resolved]
  - Dyspnoea [None]
  - Decreased appetite [None]
  - Weight decreased [None]
  - Nausea [Not Recovered/Not Resolved]
  - Vomiting [Not Recovered/Not Resolved]
  - Diarrhoea [Not Recovered/Not Resolved]
  - Abdominal discomfort [None]
  - Hypokalaemia [None]
